FAERS Safety Report 7288141-5 (Version None)
Quarter: 2011Q1

REPORT INFORMATION
  Report Type: 
  Country: None (occurrence: None)
  Receive Date: 20110211
  Receipt Date: 20110203
  Transmission Date: 20110831
  Serious: Yes (Other)
  Sender: FDA-Public Use
  Company Number: GB-ROCHE-712983

PATIENT
  Sex: Male
  Weight: 71.1 kg

DRUGS (12)
  1. TOCILIZUMAB [Suspect]
     Dosage: DOSE LEVEL: 8 MG/KG; TEMPORARILY INTERRUTED
     Route: 042
     Dates: start: 20100603
  2. PREDNISOLONE [Suspect]
     Route: 048
     Dates: start: 20080627
  3. RISEDRONATE SODIUM [Concomitant]
  4. TOCILIZUMAB [Suspect]
     Dosage: DOSE LEVEL: 8 MG/KG
     Route: 042
     Dates: start: 20100408
  5. CO-CODAMOL [Concomitant]
     Dosage: TDD REPORTED AS: 30/500 PRN
  6. CALCICHEW D3 FORTE [Concomitant]
  7. LANSOPRAZOLE [Concomitant]
  8. ALENDRONIC ACID [Concomitant]
  9. TOCILIZUMAB [Suspect]
     Dosage: DOSE LEVEL: 8 MG/KG
     Route: 042
     Dates: start: 20100506
  10. TOCILIZUMAB [Suspect]
     Indication: RHEUMATOID ARTHRITIS
     Dosage: DOSE LEVEL: 8 MG/KG
     Route: 042
     Dates: start: 20090205
  11. TOCILIZUMAB [Suspect]
     Dosage: DOSE LEVEL: 8 MG/KG
     Route: 042
     Dates: start: 20100310
  12. NYOGEL [Concomitant]
     Route: 047

REACTIONS (1)
  - CEREBROVASCULAR ACCIDENT [None]
